FAERS Safety Report 4984496-2 (Version None)
Quarter: 2006Q2

REPORT INFORMATION
  Report Type: 
  Country: None (occurrence: None)
  Receive Date: 20060420
  Receipt Date: 20060412
  Transmission Date: 20061013
  Serious: Yes (Other)
  Sender: FDA-Public Use
  Company Number: 2005170713

PATIENT
  Age: 60 Year
  Sex: Male

DRUGS (1)
  1. AMLODIPINE [Suspect]
     Indication: ILL-DEFINED DISORDER
     Dosage: 5 MG, ORAL
     Route: 048

REACTIONS (4)
  - AMYOTROPHIC LATERAL SCLEROSIS [None]
  - MOTOR NEURONE DISEASE [None]
  - PERSONALITY DISORDER [None]
  - SPEECH DISORDER [None]
